FAERS Safety Report 7279140-8 (Version None)
Quarter: 2011Q1

REPORT INFORMATION
  Report Type: 
  Country: None (occurrence: None)
  Receive Date: 20110207
  Receipt Date: 20110131
  Transmission Date: 20110831
  Serious: Yes (Hospitalization, Other)
  Sender: FDA-Public Use
  Company Number: CA-ABBOTT-11P-028-0701945-00

PATIENT
  Sex: Female
  Weight: 40.86 kg

DRUGS (3)
  1. PREDNISONE [Concomitant]
     Indication: GASTROINTESTINAL OBSTRUCTION
     Route: 058
     Dates: start: 20110125
  2. HUMIRA [Suspect]
     Indication: CROHN'S DISEASE
     Route: 058
  3. HUMIRA [Suspect]

REACTIONS (6)
  - INTESTINAL RESECTION [None]
  - INTESTINAL OBSTRUCTION [None]
  - CROHN'S DISEASE [None]
  - DRUG INEFFECTIVE [None]
  - WEIGHT DECREASED [None]
  - PAIN [None]
